FAERS Safety Report 19209724 (Version 2)
Quarter: 2021Q2

REPORT INFORMATION
  Report Type: Report from Study
  Country: US (occurrence: US)
  Receive Date: 20210503
  Receipt Date: 20210518
  Transmission Date: 20210717
  Serious: Yes (Other)
  Sender: FDA-Public Use
  Company Number: US-GILEAD-2021-0527287

PATIENT
  Age: 57 Year
  Sex: Female

DRUGS (6)
  1. CISATRACURIUM. [Concomitant]
     Active Substance: CISATRACURIUM
  2. DEXAMETHASONE. [Concomitant]
     Active Substance: DEXAMETHASONE
  3. CHLORHEXIDINE GLUCONATE. [Concomitant]
     Active Substance: CHLORHEXIDINE GLUCONATE
  4. MICAFUNGIN. [Concomitant]
     Active Substance: MICAFUNGIN SODIUM
  5. REMDESIVIR. [Suspect]
     Active Substance: REMDESIVIR
     Indication: COVID-19
     Route: 065
  6. NITRIC OXIDE. [Concomitant]
     Active Substance: NITRIC OXIDE

REACTIONS (1)
  - Acquired macroglossia [Recovering/Resolving]
